FAERS Safety Report 7635345-5 (Version None)
Quarter: 2011Q3

REPORT INFORMATION
  Report Type: 
  Country: None (occurrence: None)
  Receive Date: 20110726
  Receipt Date: 20110714
  Transmission Date: 20111222
  Serious: Yes (Hospitalization)
  Sender: FDA-Public Use
  Company Number: CH-US-EMD SERONO, INC.-7070748

PATIENT
  Sex: Female

DRUGS (5)
  1. REBIF [Suspect]
     Indication: MULTIPLE SCLEROSIS
     Route: 058
     Dates: start: 20000801
  2. EPOGAM 1000 [Concomitant]
     Indication: SUPPLEMENTATION THERAPY
  3. SEVISANALINE [Concomitant]
     Indication: TRACE ELEMENT DEFICIENCY
  4. CARSOL CR [Concomitant]
     Indication: EPILEPSY
     Route: 048
  5. TEGRETOL [Concomitant]
     Indication: EPILEPSY

REACTIONS (3)
  - THYROID DISORDER [None]
  - INFLUENZA LIKE ILLNESS [None]
  - BLOOD CHOLESTEROL INCREASED [None]
